FAERS Safety Report 16042790 (Version 1)
Quarter: 2019Q2

REPORT INFORMATION
  Report Type: Spontaneous
  Country: US (occurrence: US)
  Receive Date: 20190306
  Receipt Date: 20190306
  Transmission Date: 20190711
  Serious: Yes (Hospitalization)
  Sender: FDA-Public Use
  Company Number: None

PATIENT
  Sex: Male

DRUGS (11)
  1. MATULANE [Suspect]
     Active Substance: PROCARBAZINE HYDROCHLORIDE
     Indication: NON-HODGKIN^S LYMPHOMA
     Dosage: ?          OTHER FREQUENCY:4/3 CAPS ALTERNATI;?
     Route: 048
  2. LORAZEPAM 0.5MG TABLETS [Concomitant]
     Active Substance: LORAZEPAM
     Dates: start: 20161206
  3. CLONAZEPAM 1MG TABLETS MFG-MYLAN- GENERIC EQUIVALENT FOR KLONOPIN 1MG [Concomitant]
     Active Substance: CLONAZEPAM
     Dates: start: 20161110
  4. DIFLUCAN [Concomitant]
     Active Substance: FLUCONAZOLE
     Dates: start: 20161110
  5. ACYCLOVIR 200MG CAPSULE [Concomitant]
     Active Substance: ACYCLOVIR
     Dates: start: 20161110
  6. NICCOTINE PATCH 21MG/24H [Concomitant]
     Active Substance: NICOTINE
  7. TYLENOL WITH CODEINE [Concomitant]
     Active Substance: ACETAMINOPHEN\CODEINE PHOSPHATE
     Dates: start: 20161110
  8. DEXAMETHASONE 1MG TABLETS [Concomitant]
     Active Substance: DEXAMETHASONE
     Dates: start: 20161110
  9. AMBIEN [Concomitant]
     Active Substance: ZOLPIDEM TARTRATE
     Dates: start: 20161110
  10. KEPPRA [Concomitant]
     Active Substance: LEVETIRACETAM
     Dates: start: 20161110
  11. LEVAQUIN [Concomitant]
     Active Substance: LEVOFLOXACIN
     Dates: start: 20161110

REACTIONS (1)
  - Chronic obstructive pulmonary disease [None]
